FAERS Safety Report 9441725 (Version 1)
Quarter: 2013Q3

REPORT INFORMATION
  Report Type: Spontaneous
  Country: DE (occurrence: DE)
  Receive Date: 20130806
  Receipt Date: 20130806
  Transmission Date: 20140515
  Serious: Yes (Other)
  Sender: FDA-Public Use
  Company Number: DE-009507513-1308DEU000517

PATIENT
  Age: 69 Year
  Sex: Male
  Weight: 82 kg

DRUGS (3)
  1. COSOPT [Suspect]
     Indication: OCULAR HYPERTENSION
     Dosage: 2 DF, UNK
     Route: 047
     Dates: start: 20130527
  2. TAFLOTAN [Concomitant]
     Dosage: DAILY DOSE:1 DF DOSAGE FORM EVERY DAYS
     Route: 047
  3. LISINOPRIL [Concomitant]
     Dosage: DAILY DOSE:1 DF DOSAGE FORM EVERY DAYS
     Route: 048

REACTIONS (5)
  - Eye inflammation [Recovering/Resolving]
  - Eye swelling [Recovering/Resolving]
  - Eye irritation [Recovering/Resolving]
  - Ocular hyperaemia [Recovering/Resolving]
  - Eye pruritus [Recovering/Resolving]
